FAERS Safety Report 23993723 (Version 1)
Quarter: 2024Q2

REPORT INFORMATION
  Report Type: Spontaneous
  Country: BR (occurrence: BR)
  Receive Date: 20240620
  Receipt Date: 20240620
  Transmission Date: 20240716
  Serious: Yes (Hospitalization, Other)
  Sender: FDA-Public Use
  Company Number: BR-SEATTLE GENETICS-2024SGN03234

PATIENT
  Age: 76 Year
  Sex: Male

DRUGS (3)
  1. PADCEV [Suspect]
     Active Substance: ENFORTUMAB VEDOTIN-EJFV
     Indication: Transitional cell carcinoma metastatic
     Dosage: 1 MG/KG, EVERY 3 WEEKS (D1 D8 Q21D)
     Route: 065
     Dates: start: 20240209
  2. PADCEV [Suspect]
     Active Substance: ENFORTUMAB VEDOTIN-EJFV
     Indication: Bladder transitional cell carcinoma
     Dosage: 0.75 MG/KG, UNKNOWN FREQ.
     Route: 065
  3. PEMBROLIZUMAB [Concomitant]
     Active Substance: PEMBROLIZUMAB
     Indication: Transitional cell carcinoma metastatic
     Dosage: UNK UNK, UNKNOWN FREQ.
     Route: 065

REACTIONS (4)
  - Hyperglycaemia [Recovered/Resolved]
  - Dermatitis bullous [Recovered/Resolved]
  - Carditis [Unknown]
  - Nephritis [Unknown]

NARRATIVE: CASE EVENT DATE: 20240301
